FAERS Safety Report 6509176-3 (Version None)
Quarter: 2009Q4

REPORT INFORMATION
  Report Type: 
  Country: None (occurrence: None)
  Receive Date: 20091221
  Receipt Date: 20091208
  Transmission Date: 20100525
  Serious: Yes (Hospitalization)
  Sender: FDA-Public Use
  Company Number: KR-GENENTECH-284561

PATIENT
  Sex: Female

DRUGS (5)
  1. RITUXIMAB [Suspect]
     Indication: DIFFUSE LARGE B-CELL LYMPHOMA
     Dosage: 470 MG, Q3W
     Route: 042
     Dates: start: 20090513, end: 20091119
  2. CYCLOPHOSPHAMIDE [Suspect]
     Indication: DIFFUSE LARGE B-CELL LYMPHOMA
     Dosage: 940 MG, UNK
     Route: 065
     Dates: start: 20090514, end: 20091119
  3. DOXORUBICIN HCL [Suspect]
     Indication: DIFFUSE LARGE B-CELL LYMPHOMA
     Dosage: 63 MG, UNK
     Route: 065
     Dates: start: 20090514, end: 20091119
  4. VINCRISTINE [Suspect]
     Indication: DIFFUSE LARGE B-CELL LYMPHOMA
     Dosage: 1.8 MG, UNK
     Route: 065
     Dates: start: 20090514, end: 20091119
  5. PREDNISOLONE [Suspect]
     Indication: DIFFUSE LARGE B-CELL LYMPHOMA
     Dosage: 100 MG, UNK
     Route: 065
     Dates: start: 20090514, end: 20091123

REACTIONS (4)
  - EAR PAIN [None]
  - FEBRILE NEUTROPENIA [None]
  - OTITIS MEDIA [None]
  - OTORRHOEA [None]
